FAERS Safety Report 16353559 (Version 1)
Quarter: 2019Q2

REPORT INFORMATION
  Report Type: Other
  Country: GB (occurrence: GB)
  Receive Date: 20190524
  Receipt Date: 20190524
  Transmission Date: 20190711
  Serious: Yes (Hospitalization)
  Sender: FDA-Public Use
  Company Number: GB-GENUS_LIFESCIENCES-USA-POI0580201900237

PATIENT
  Age: 19 Year
  Sex: Male

DRUGS (1)
  1. GOPRELTO [Suspect]
     Active Substance: COCAINE HYDROCHLORIDE
     Indication: INTENTIONAL PRODUCT MISUSE
     Route: 045
     Dates: start: 2016

REACTIONS (1)
  - Spinal cord infarction [Recovered/Resolved]

NARRATIVE: CASE EVENT DATE: 201701
